FAERS Safety Report 10768690 (Version 2)
Quarter: 2016Q1

REPORT INFORMATION
  Report Type: Spontaneous
  Country: GB (occurrence: GB)
  Receive Date: 20150206
  Receipt Date: 20160129
  Transmission Date: 20160525
  Serious: Yes (Hospitalization)
  Sender: FDA-Public Use
  Company Number: GB-ROCHE-1529878

PATIENT
  Sex: Female

DRUGS (1)
  1. PULMOZYME [Suspect]
     Active Substance: DORNASE ALFA
     Indication: CYSTIC FIBROSIS
     Dosage: 2500 U / 2.5ML NEBULISER SOLUTION
     Route: 065

REACTIONS (3)
  - Drug dose omission [Unknown]
  - Lower respiratory tract infection [Unknown]
  - Malaise [Unknown]
